FAERS Safety Report 24668409 (Version 1)
Quarter: 2024Q4

REPORT INFORMATION
  Report Type: Spontaneous
  Country: US (occurrence: US)
  Receive Date: 20241127
  Receipt Date: 20241127
  Transmission Date: 20250114
  Serious: Yes (Death)
  Sender: AMNEAL
  Company Number: US-AMNEAL PHARMACEUTICALS-2024-AMRX-04280

PATIENT
  Age: 12 Year
  Sex: Female
  Weight: 30.884 kg

DRUGS (1)
  1. VIGABATRIN [Suspect]
     Active Substance: VIGABATRIN
     Indication: Illness
     Dosage: MIX 3 PACKETS IN 30 ML OF WATER AND GIVE/TAKE 25 ML (1250 MG TOTAL) BY G-TUBE IN THE MORNING AND BEF
     Route: 048

REACTIONS (1)
  - Death [Fatal]

NARRATIVE: CASE EVENT DATE: 20241004
